FAERS Safety Report 4640910-3 (Version None)
Quarter: 2005Q2

REPORT INFORMATION
  Report Type: 
  Country: None (occurrence: None)
  Receive Date: 20050324
  Receipt Date: 20050120
  Transmission Date: 20051028
  Serious: No
  Sender: FDA-Public Use
  Company Number: 211989

PATIENT
  Age: 82 Year
  Sex: Female

DRUGS (6)
  1. AVASTIN [Suspect]
     Indication: COLORECTAL CANCER METASTATIC
     Dosage: 5 MG/KG, Q2W, INTRAVENOUS
     Route: 042
     Dates: start: 20040614
  2. 5-FU (FLOUROURACIL) [Concomitant]
  3. LEUCOVORIN CALCIUM [Concomitant]
  4. OXALIPLATIN [Concomitant]
  5. XELODA [Concomitant]
  6. ERBITUX (CETUXIMAB) [Concomitant]

REACTIONS (1)
  - CELLULITIS [None]
